FAERS Safety Report 5734543-5 (Version None)
Quarter: 2008Q2

REPORT INFORMATION
  Report Type: 
  Country: None (occurrence: None)
  Receive Date: 20080512
  Receipt Date: 20080507
  Transmission Date: 20081010
  Serious: Yes (Other)
  Sender: FDA-Public Use
  Company Number: PHEH2008US04392

PATIENT
  Sex: Male

DRUGS (1)
  1. AREDIA [Suspect]
     Dates: start: 20011201, end: 20040501

REACTIONS (7)
  - ANXIETY [None]
  - INJURY [None]
  - OSTEONECROSIS [None]
  - PAIN IN JAW [None]
  - PATHOLOGICAL FRACTURE [None]
  - SPEECH DISORDER [None]
  - TOOTH EXTRACTION [None]
